FAERS Safety Report 5835966-6 (Version None)
Quarter: 2008Q3

REPORT INFORMATION
  Report Type: 
  Country: None (occurrence: None)
  Receive Date: 20080806
  Receipt Date: 20080725
  Transmission Date: 20090109
  Serious: Yes (Congenital Anomaly, Other)
  Sender: FDA-Public Use
  Company Number: US-PFIZER INC-2007095343

PATIENT
  Sex: Male

DRUGS (6)
  1. ZOLOFT [Suspect]
     Indication: DEPRESSION
     Route: 048
  2. ZOLOFT [Suspect]
     Indication: OBSESSIVE-COMPULSIVE DISORDER
  3. ZANTAC [Concomitant]
  4. VITAMIN TAB [Concomitant]
  5. PROMETHAZINE [Concomitant]
  6. NITROUS OXIDE [Concomitant]

REACTIONS (15)
  - ATRIAL SEPTAL DEFECT [None]
  - DEVELOPMENTAL DELAY [None]
  - DRUG EXPOSURE DURING PREGNANCY [None]
  - EAR INFECTION [None]
  - EAR MALFORMATION [None]
  - FAILURE TO THRIVE [None]
  - FOETAL GROWTH RETARDATION [None]
  - HEAD DEFORMITY [None]
  - HYDRONEPHROSIS [None]
  - HYPOSPADIAS [None]
  - RESPIRATORY DISORDER [None]
  - TALIPES [None]
  - UMBILICAL CORD ABNORMALITY [None]
  - VENTRICULAR SEPTAL DEFECT [None]
  - WEIGHT GAIN POOR [None]
